FAERS Safety Report 23293481 (Version 2)
Quarter: 2024Q1

REPORT INFORMATION
  Report Type: Report from Study
  Country: US (occurrence: US)
  Receive Date: 20231213
  Receipt Date: 20240112
  Transmission Date: 20240410
  Serious: Yes (Hospitalization, Other)
  Sender: FDA-Public Use
  Company Number: US-OTSUKA-2023_032000

PATIENT
  Age: 60 Year
  Sex: Male

DRUGS (20)
  1. TOLVAPTAN [Suspect]
     Active Substance: TOLVAPTAN
     Indication: Congenital cystic kidney disease
     Dosage: 45 MG, QD (EVERY MORNING)
     Route: 048
     Dates: start: 20180907
  2. TOLVAPTAN [Suspect]
     Active Substance: TOLVAPTAN
     Indication: Congenital cystic kidney disease
     Dosage: 15 MG, QD (8 H LATER)
     Route: 048
     Dates: start: 20180907
  3. TOLVAPTAN [Suspect]
     Active Substance: TOLVAPTAN
     Dosage: UNK
     Route: 065
     Dates: start: 20180829
  4. TOLVAPTAN [Suspect]
     Active Substance: TOLVAPTAN
     Dosage: 45 MG, QD (EVERY MORNING)
     Route: 048
     Dates: start: 20230807
  5. TOLVAPTAN [Suspect]
     Active Substance: TOLVAPTAN
     Dosage: 15 MG, QD (8 H LATER)
     Route: 048
     Dates: start: 20230807
  6. JANUVIA [Concomitant]
     Active Substance: SITAGLIPTIN PHOSPHATE
     Indication: Product used for unknown indication
     Dosage: 0.5 DF, QD
     Route: 048
     Dates: start: 20231208, end: 20231221
  7. TYLENOL [Concomitant]
     Active Substance: ACETAMINOPHEN
     Indication: Product used for unknown indication
     Dosage: 2 DF, EVERY 6 HOURS
     Route: 048
     Dates: start: 20220505
  8. ACETAMINOPHEN [Concomitant]
     Active Substance: ACETAMINOPHEN
     Indication: Product used for unknown indication
     Dosage: 2 DF, EVERY 6 HOURS
     Route: 048
     Dates: start: 20220505
  9. ZYLOPRIM [Concomitant]
     Active Substance: ALLOPURINOL
     Indication: Product used for unknown indication
     Dosage: 1 DF, BID
     Route: 048
     Dates: start: 20231016
  10. NORVASC [Concomitant]
     Active Substance: AMLODIPINE BESYLATE
     Indication: Product used for unknown indication
     Dosage: 1 DF, QD
     Route: 048
     Dates: start: 20230523
  11. LIPITOR [Concomitant]
     Active Substance: ATORVASTATIN CALCIUM
     Indication: Product used for unknown indication
     Dosage: 1 DF, QD
     Route: 048
     Dates: start: 20231017, end: 20231229
  12. ZETIA [Concomitant]
     Active Substance: EZETIMIBE
     Indication: Product used for unknown indication
     Dosage: 1 DF, QD
     Route: 048
     Dates: start: 20231201, end: 20240102
  13. TOPROL XL [Concomitant]
     Active Substance: METOPROLOL SUCCINATE
     Indication: Product used for unknown indication
     Dosage: 1 DF, QD
     Route: 048
     Dates: start: 20230503
  14. NIACIN [Concomitant]
     Active Substance: NIACIN
     Indication: Product used for unknown indication
     Dosage: 5 DF, QD
     Route: 048
  15. SEMAGLUTIDE [Concomitant]
     Active Substance: SEMAGLUTIDE
     Indication: Product used for unknown indication
     Dosage: INJECT 0.25 MG UNDER THE SKIN WEEKLY X 4 WEEKS, THEN INCREASE TO 0.5 MG WEEKLY
     Route: 058
  16. SODIUM BICARBONATE [Concomitant]
     Active Substance: SODIUM BICARBONATE
     Indication: Product used for unknown indication
     Dosage: 1 DF, BID
     Route: 065
     Dates: start: 20221102
  17. VITAMIN D3 [Concomitant]
     Active Substance: CHOLECALCIFEROL
     Indication: Product used for unknown indication
     Dosage: 2000 IU, QD
     Route: 048
  18. WARFARIN [Concomitant]
     Active Substance: WARFARIN
     Indication: Product used for unknown indication
     Dosage: 7.5 MG, SATURDAY
     Route: 048
     Dates: start: 20231114, end: 20240102
  19. WARFARIN [Concomitant]
     Active Substance: WARFARIN
     Dosage: 5 MG, ALL OTHER DAYS
     Route: 048
     Dates: start: 20231114, end: 20240102
  20. AUGMENTIN [Concomitant]
     Active Substance: AMOXICILLIN\CLAVULANATE POTASSIUM
     Indication: Product used for unknown indication
     Dosage: 1 DF, EVERY 12 HOURS FOR 10 DAYS
     Route: 048
     Dates: start: 20231209, end: 20231219

REACTIONS (29)
  - Diverticulitis intestinal perforated [Not Recovered/Not Resolved]
  - Intestinal perforation [Unknown]
  - Colectomy [Unknown]
  - Rectal prolapse repair [Unknown]
  - Colorectal adenoma [Unknown]
  - Colostomy closure [Unknown]
  - Prothrombin time prolonged [Unknown]
  - Glycosylated haemoglobin increased [Unknown]
  - High density lipoprotein decreased [Unknown]
  - Total cholesterol/HDL ratio increased [Unknown]
  - Urine protein/creatinine ratio increased [Unknown]
  - Glucose urine present [Unknown]
  - Protein urine present [Unknown]
  - Proteinuria [Unknown]
  - Blood calcium decreased [Recovered/Resolved]
  - Protein total decreased [Recovered/Resolved]
  - Blood albumin decreased [Recovered/Resolved]
  - Blood chloride increased [Not Recovered/Not Resolved]
  - Carbon dioxide decreased [Not Recovered/Not Resolved]
  - Haemorrhoids [Unknown]
  - Blood triglycerides increased [Unknown]
  - Blood alkaline phosphatase increased [Unknown]
  - Blood urea increased [Not Recovered/Not Resolved]
  - Blood urine present [Unknown]
  - Blood creatinine increased [Not Recovered/Not Resolved]
  - Glomerular filtration rate decreased [Not Recovered/Not Resolved]
  - Blood glucose increased [Not Recovered/Not Resolved]
  - Blood sodium increased [Recovered/Resolved]
  - Aspartate aminotransferase increased [Recovered/Resolved]

NARRATIVE: CASE EVENT DATE: 20210103
